FAERS Safety Report 5167458-4 (Version None)
Quarter: 2006Q4

REPORT INFORMATION
  Report Type: 
  Country: None (occurrence: None)
  Receive Date: 20061130
  Receipt Date: 20061120
  Transmission Date: 20070319
  Serious: Yes (Hospitalization)
  Sender: FDA-Public Use
  Company Number: 2006SP005610

PATIENT
  Age: 46 Year
  Sex: Male

DRUGS (6)
  1. PEG-INTRON [Suspect]
     Indication: HEPATITIS C
     Dosage: 1.5 MCG/KG; QW; SC
     Route: 058
     Dates: start: 20061004
  2. REBETOL [Suspect]
     Indication: HEPATITIS C
     Dosage: 1200 MG; QD; PO
     Route: 048
     Dates: start: 20061004
  3. XATRAL (CON.)  /00975301/ [Concomitant]
  4. SEROPRAM (CON.) /00582602/ [Concomitant]
  5. CITALOPRAM (CON.) [Concomitant]
  6. ALFUZOSIN HYDROCHLORIDE (CON.) [Concomitant]

REACTIONS (5)
  - ABDOMINAL PAIN [None]
  - HAEMOTHORAX [None]
  - PAIN [None]
  - PERICARDITIS [None]
  - PYREXIA [None]
